FAERS Safety Report 12144305 (Version 5)
Quarter: 2018Q3

REPORT INFORMATION
  Report Type: Report from Study
  Country: CA (occurrence: CA)
  Receive Date: 20160304
  Receipt Date: 20180903
  Transmission Date: 20181010
  Serious: Yes (Hospitalization, Other)
  Sender: FDA-Public Use
  Company Number: CA-ROCHE-1721039

PATIENT
  Age: 55 Year
  Sex: Female
  Weight: 90.5 kg

DRUGS (12)
  1. RITUXAN [Suspect]
     Active Substance: RITUXIMAB
     Route: 042
     Dates: start: 20170410
  2. METHYLPREDNISOLONE. [Suspect]
     Active Substance: METHYLPREDNISOLONE
     Indication: PRODUCT USED FOR UNKNOWN INDICATION
     Route: 042
     Dates: start: 20160421
  3. TYLENOL WITH CODEINE [Concomitant]
     Active Substance: ACETAMINOPHEN\CODEINE PHOSPHATE
  4. CYMBALTA [Concomitant]
     Active Substance: DULOXETINE HYDROCHLORIDE
     Indication: FIBROMYALGIA
  5. DIPHENHYDRAMINE HCL [Concomitant]
     Active Substance: DIPHENHYDRAMINE HYDROCHLORIDE
     Indication: PREMEDICATION
     Route: 048
     Dates: start: 20160421
  6. ACETAMINOPHEN. [Concomitant]
     Active Substance: ACETAMINOPHEN
     Indication: PREMEDICATION
     Route: 048
     Dates: start: 20160421
  7. RITUXAN [Suspect]
     Active Substance: RITUXIMAB
     Indication: B-CELL LYMPHOMA
     Route: 042
  8. BENDAMUSTINE [Concomitant]
     Active Substance: BENDAMUSTINE
  9. RITUXAN [Suspect]
     Active Substance: RITUXIMAB
     Dosage: 1ST RPAP DOSE
     Route: 042
     Dates: start: 20160421
  10. FLEXERIL [Concomitant]
     Active Substance: CYCLOBENZAPRINE HYDROCHLORIDE
  11. RITUXAN [Suspect]
     Active Substance: RITUXIMAB
     Route: 042
     Dates: start: 20170802
  12. MAXALT [Concomitant]
     Active Substance: RIZATRIPTAN BENZOATE

REACTIONS (20)
  - Cystitis [Recovered/Resolved]
  - Nasopharyngitis [Not Recovered/Not Resolved]
  - Gallbladder disorder [Recovering/Resolving]
  - Psychomotor hyperactivity [Recovered/Resolved]
  - Malaise [Unknown]
  - B-cell lymphoma recurrent [Unknown]
  - Immunodeficiency [Not Recovered/Not Resolved]
  - Poor venous access [Unknown]
  - Anxiety [Unknown]
  - Lymphocyte count abnormal [Unknown]
  - Blood pressure increased [Unknown]
  - Blood pressure fluctuation [Unknown]
  - Blood pressure systolic increased [Unknown]
  - Wound [Recovering/Resolving]
  - Weight decreased [Not Recovered/Not Resolved]
  - Pharyngitis [Unknown]
  - Sinusitis [Not Recovered/Not Resolved]
  - Blood pressure increased [Unknown]
  - Limb injury [Recovering/Resolving]
  - Antibody test abnormal [Unknown]

NARRATIVE: CASE EVENT DATE: 20160421
